FAERS Safety Report 24920104 (Version 1)
Quarter: 2025Q1

REPORT INFORMATION
  Report Type: Report from Study
  Country: US (occurrence: US)
  Receive Date: 20250204
  Receipt Date: 20250204
  Transmission Date: 20250409
  Serious: No
  Sender: EXELIXIS
  Company Number: US-EXELIXIS-CABO-24072799

PATIENT
  Sex: Female
  Weight: 49.4 kg

DRUGS (12)
  1. CABOMETYX [Suspect]
     Active Substance: CABOZANTINIB S-MALATE
     Indication: Ewing^s sarcoma
     Dosage: 40 MG, QD
     Route: 048
     Dates: start: 20231127
  2. NYVEPRIA [Concomitant]
     Active Substance: PEGFILGRASTIM-APGF
  3. COLACE [Concomitant]
     Active Substance: DOCUSATE SODIUM
  4. PROBIOTICS NOS [Concomitant]
     Active Substance: PROBIOTICS NOS
  5. VITAMINS [Concomitant]
     Active Substance: VITAMINS
  6. SENNA [Concomitant]
     Active Substance: SENNOSIDES
  7. ZINC [Concomitant]
     Active Substance: ZINC
  8. QUERCETIN [Concomitant]
     Active Substance: QUERCETIN
  9. FAMOTIDINE [Concomitant]
     Active Substance: FAMOTIDINE
  10. LUBIPROSTONE [Concomitant]
     Active Substance: LUBIPROSTONE
  11. OLANZAPINE [Concomitant]
     Active Substance: OLANZAPINE
  12. BACTRIM [Concomitant]
     Active Substance: SULFAMETHOXAZOLE\TRIMETHOPRIM

REACTIONS (3)
  - Weight decreased [Unknown]
  - Diarrhoea [Unknown]
  - Off label use [Unknown]
